FAERS Safety Report 20903665 (Version 2)
Quarter: 2022Q2

REPORT INFORMATION
  Report Type: Spontaneous
  Country: JP (occurrence: JP)
  Receive Date: 20220602
  Receipt Date: 20220620
  Transmission Date: 20220721
  Serious: Yes (Hospitalization, Other)
  Sender: FDA-Public Use
  Company Number: JP-DSJP-DSJ-2022-118614

PATIENT
  Sex: Male

DRUGS (1)
  1. DENOSUMAB [Suspect]
     Active Substance: DENOSUMAB
     Indication: Metastases to bone
     Dosage: UNK, 2022/03/??
     Route: 065
     Dates: end: 202203

REACTIONS (2)
  - Fall [Unknown]
  - Brain contusion [Unknown]

NARRATIVE: CASE EVENT DATE: 20220101
